FAERS Safety Report 4421245-0 (Version None)
Quarter: 2004Q3

REPORT INFORMATION
  Report Type: 
  Country: None (occurrence: None)
  Receive Date: 20040809
  Receipt Date: 20040805
  Transmission Date: 20050211
  Serious: Yes (Death, Hospitalization, Other)
  Sender: FDA-Public Use
  Company Number: PHNU2004DE02744

PATIENT
  Age: 71 Year
  Sex: Female

DRUGS (2)
  1. SANDIMMUNE [Suspect]
     Indication: RENAL TRANSPLANT
     Dosage: 150MG/DAY
     Dates: start: 19970306, end: 20040612
  2. PREDNISOLONE [Concomitant]
     Indication: IMMUNOSUPPRESSION
     Dosage: 7.5MG/DAY
     Dates: start: 19970306, end: 20040612

REACTIONS (5)
  - DEHYDRATION [None]
  - GRAFT LOSS [None]
  - HYDRONEPHROSIS [None]
  - URINARY SEDIMENT PRESENT [None]
  - UROSEPSIS [None]
